FAERS Safety Report 4836723-X (Version None)
Quarter: 2005Q4

REPORT INFORMATION
  Report Type: 
  Country: None (occurrence: None)
  Receive Date: 20051121
  Receipt Date: 20051104
  Transmission Date: 20060501
  Serious: Yes (Hospitalization)
  Sender: FDA-Public Use
  Company Number: 219494

PATIENT
  Age: 76 Year
  Sex: Male
  Weight: 82 kg

DRUGS (7)
  1. AVASTIN [Suspect]
     Indication: COLORECTAL CANCER
     Dosage: 450 MG, Q2W, INTRAVENOUS
     Route: 042
     Dates: start: 20050831
  2. OXALIPLATIN (OXALIPLATIN) [Suspect]
     Indication: COLORECTAL CANCER
     Dosage: 170 MG, Q2W, INTRAVITREAL
     Dates: start: 20050829
  3. FLUOROURACIL [Suspect]
     Indication: COLORECTAL CANCER
     Dosage: 800 MG Q2W, INTRAVENOUS
     Route: 042
     Dates: start: 20050829
  4. LEUCOVORIN CALCIUM [Suspect]
     Indication: COLORECTAL CANCER
     Dosage: 400 MG, Q2W, INTRAVENOUS
     Route: 042
     Dates: start: 20050829
  5. ZESTORETIC (HYDROCHLORITHIAZIDE, LISINOPRIL) [Concomitant]
  6. MOVICOL (POLYETHYLENE GLYCOL, ELECTROLYTE NOS) [Concomitant]
  7. NEXIUM [Concomitant]

REACTIONS (3)
  - BLOOD ALBUMIN DECREASED [None]
  - LARGE INTESTINE PERFORATION [None]
  - PERITONITIS [None]
